FAERS Safety Report 5288593-6 (Version None)
Quarter: 2007Q2

REPORT INFORMATION
  Report Type: 
  Country: None (occurrence: None)
  Receive Date: 20070405
  Receipt Date: 20070330
  Transmission Date: 20071010
  Serious: No
  Sender: FDA-Public Use
  Company Number: 2006UW07947

PATIENT
  Sex: Male
  Weight: 90.9 kg

DRUGS (6)
  1. SEROQUEL [Suspect]
     Indication: BIPOLAR DISORDER
     Route: 048
     Dates: start: 20040101, end: 20060101
  2. ABILIFY [Concomitant]
  3. GEODON [Concomitant]
  4. HALDOL [Concomitant]
  5. RISPERDAL [Concomitant]
  6. ZOLOFT [Concomitant]

REACTIONS (2)
  - DIABETES MELLITUS [None]
  - WEIGHT INCREASED [None]
